FAERS Safety Report 9115983 (Version 1)
Quarter: 2013Q1

REPORT INFORMATION
  Report Type: Spontaneous
  Country: FR (occurrence: FR)
  Receive Date: 20130225
  Receipt Date: 20130225
  Transmission Date: 20140127
  Serious: Yes (Hospitalization)
  Sender: FDA-Public Use
  Company Number: FR-ELI_LILLY_AND_COMPANY-FR201302003647

PATIENT
  Age: 51 Year
  Sex: Female

DRUGS (10)
  1. PROZAC [Suspect]
     Dosage: 1 DF, UNKNOWN
     Route: 048
     Dates: start: 201206
  2. GLUCOPHAGE [Concomitant]
     Dosage: 1 G, TID
  3. EUTHYRAL [Concomitant]
     Dosage: 1 DF, UNKNOWN
  4. MICARDIS PLUS [Concomitant]
     Dosage: 1 DF, UNKNOWN
  5. LUTERAN [Concomitant]
     Dosage: 1 DF, UNKNOWN
  6. VASTEN [Concomitant]
     Dosage: 20 MG, QD
  7. TARDYFERON [Concomitant]
     Dosage: 1 DF, UNKNOWN
  8. VICTOZA [Concomitant]
     Dosage: 1.5 MG, QD
  9. NOVONORM [Concomitant]
     Dosage: 2 MG, QD
  10. AUGMENTIN                               /UNK/ [Concomitant]
     Indication: TOOTH ABSCESS
     Dosage: 1 G, TID

REACTIONS (2)
  - Galactorrhoea [Unknown]
  - Hyperprolactinaemia [Unknown]
